FAERS Safety Report 5422568-9 (Version None)
Quarter: 2007Q3

REPORT INFORMATION
  Report Type: 
  Country: None (occurrence: None)
  Receive Date: 20070822
  Receipt Date: 20070813
  Transmission Date: 20080115
  Serious: Yes (Other)
  Sender: FDA-Public Use
  Company Number: FR-AMGEN-UK231315

PATIENT
  Age: 32 Year
  Sex: Female
  Weight: 64 kg

DRUGS (11)
  1. MIMPARA [Suspect]
     Indication: HYPERPARATHYROIDISM SECONDARY
     Route: 048
     Dates: start: 20051201
  2. UTROGESTAN [Concomitant]
     Route: 065
  3. CORTANCYL [Concomitant]
     Route: 065
  4. PLAQUENIL [Concomitant]
     Route: 065
  5. SECTRAL [Concomitant]
     Route: 065
  6. TAHOR [Concomitant]
     Route: 065
  7. OMEPRAZOLE [Concomitant]
     Route: 065
  8. KAYEXALATE [Concomitant]
     Route: 065
  9. ALFACALCIDOL [Concomitant]
     Route: 065
  10. CALCIUM CARBONATE [Concomitant]
     Route: 065
  11. ASPERGIC [Concomitant]
     Dates: start: 20051201

REACTIONS (2)
  - HYPOCALCAEMIA [None]
  - TETANY [None]
